FAERS Safety Report 6414754-6 (Version None)
Quarter: 2009Q4

REPORT INFORMATION
  Report Type: 
  Country: None (occurrence: None)
  Receive Date: 20091026
  Receipt Date: 20091026
  Transmission Date: 20100525
  Serious: Yes (Other)
  Sender: FDA-Public Use
  Company Number: None

PATIENT
  Sex: Female
  Weight: 71.8 kg

DRUGS (16)
  1. LACOSAMIDE [Suspect]
     Indication: CONVULSION
     Dosage: 200 MG ONCE IV BOLUS   ONE DOSE
     Route: 040
     Dates: start: 20091022, end: 20091022
  2. LACOSAMIDE [Suspect]
     Indication: CONVULSION
     Dosage: 100 MG Q12H IV BOLUS  ONE DOSE
     Route: 040
     Dates: start: 20091023, end: 20091023
  3. PROPOFOL [Concomitant]
  4. PHENOBARBITAL [Concomitant]
  5. KETAMINE GTT [Concomitant]
  6. 3% SALINE NACL [Concomitant]
  7. CIPROFLOXACIN [Concomitant]
  8. FOSPHENYTOIN [Concomitant]
  9. MIDAZOLAM HCL [Concomitant]
  10. METRONIDAZOLE [Concomitant]
  11. CYCLOPHOSPHAMIDE [Concomitant]
  12. INSULIN SLIDING SCALE [Concomitant]
  13. PANTOPRAZOLE [Concomitant]
  14. ACETAMINOPHEN [Concomitant]
  15. ELECTROLYTE REPLACEMENTS [Concomitant]
  16. HEPARIN SUBQ [Concomitant]

REACTIONS (2)
  - ANGIOEDEMA [None]
  - SWOLLEN TONGUE [None]
